FAERS Safety Report 8374275-0 (Version None)
Quarter: 2012Q2

REPORT INFORMATION
  Report Type: 
  Country: None (occurrence: None)
  Receive Date: 20120521
  Receipt Date: 20120511
  Transmission Date: 20120825
  Serious: Yes (Other)
  Sender: FDA-Public Use
  Company Number: US-ASTRAZENECA-2010SE59067

PATIENT
  Age: 59 Year
  Sex: Female

DRUGS (1)
  1. NEXIUM [Suspect]
     Route: 048

REACTIONS (10)
  - MEMORY IMPAIRMENT [None]
  - GASTRIC DISORDER [None]
  - APHAGIA [None]
  - CHEST PAIN [None]
  - PAIN [None]
  - CEREBROVASCULAR ACCIDENT [None]
  - REGURGITATION [None]
  - VOMITING [None]
  - INTENTIONAL DRUG MISUSE [None]
  - MALAISE [None]
